FAERS Safety Report 4659879-0 (Version None)
Quarter: 2005Q2

REPORT INFORMATION
  Report Type: 
  Country: None (occurrence: None)
  Receive Date: 20050510
  Receipt Date: 20050505
  Transmission Date: 20051028
  Serious: No
  Sender: FDA-Public Use
  Company Number: 212772

PATIENT
  Age: 26 Year
  Sex: Female
  Weight: 61.2 kg

DRUGS (3)
  1. EFALIZUMAB (EFALIZUMAB) PWDR + SOLVENT, INJECTION SOLN, 125 MG [Suspect]
     Indication: PSORIASIS
     Dosage: SUBCUTANEOUS
     Route: 058
     Dates: start: 20041222
  2. UVB LIGHT TREATMENT (PHOTOTHERAPY UVB) [Concomitant]
  3. PRENATAL VITAMINS (MINERALS NOS, MULTIVITAMINS NOS) [Concomitant]

REACTIONS (7)
  - ABORTION INDUCED [None]
  - DRUG EXPOSURE DURING PREGNANCY [None]
  - INTRA-UTERINE DEATH [None]
  - PREGNANCY [None]
  - PUVA [None]
  - SMOKER [None]
  - VAGINAL HAEMORRHAGE [None]
